FAERS Safety Report 12984439 (Version 2)
Quarter: 2016Q4

REPORT INFORMATION
  Report Type: Report from Study
  Country: US (occurrence: US)
  Receive Date: 20161129
  Receipt Date: 20161220
  Transmission Date: 20170207
  Serious: No
  Sender: FDA-Public Use
  Company Number: US-ASTRAZENECA-2016SF06141

PATIENT
  Age: 65 Year
  Sex: Male
  Weight: 59.4 kg

DRUGS (12)
  1. VITAMIN D [Concomitant]
     Active Substance: CHOLECALCIFEROL
     Indication: IMMUNE SYSTEM DISORDER
     Route: 048
  2. VITAMIN D [Concomitant]
     Active Substance: CHOLECALCIFEROL
     Indication: IMMUNE SYSTEM DISORDER
     Route: 048
  3. PROBIOTIC [Concomitant]
     Active Substance: PROBIOTICS NOS
     Indication: IMMUNE SYSTEM DISORDER
  4. ALBUTEROL. [Concomitant]
     Active Substance: ALBUTEROL
     Indication: WHEEZING
     Route: 055
  5. DALIRESP [Suspect]
     Active Substance: ROFLUMILAST
     Route: 048
  6. SYMBICORT [Suspect]
     Active Substance: BUDESONIDE\FORMOTEROL FUMARATE DIHYDRATE
     Indication: CHRONIC OBSTRUCTIVE PULMONARY DISEASE
     Dosage: 160/4.5 MCG TWO PUFFS TWICE A DAY
     Route: 055
  7. ALBUTEROL. [Concomitant]
     Active Substance: ALBUTEROL
     Indication: DYSPNOEA
     Dosage: 2 PUFFS 4 TIMES A DAY AS NEEDED
     Route: 055
  8. ALBUTEROL. [Concomitant]
     Active Substance: ALBUTEROL
     Indication: WHEEZING
     Dosage: 2 PUFFS 4 TIMES A DAY AS NEEDED
     Route: 055
  9. ALBUTEROL. [Concomitant]
     Active Substance: ALBUTEROL
     Indication: DYSPNOEA
     Route: 055
  10. LOSARTAN. [Concomitant]
     Active Substance: LOSARTAN
     Indication: BLOOD PRESSURE MEASUREMENT
     Route: 048
  11. PROBIOTIC [Concomitant]
     Active Substance: PROBIOTICS NOS
     Indication: DIVERTICULITIS
  12. TUDORZA PRESSAIR [Concomitant]
     Active Substance: ACLIDINIUM BROMIDE
     Dosage: 400 MCG, ONE PUFF TWO TIMES A DAY
     Route: 055
     Dates: start: 20161117

REACTIONS (8)
  - Abdominal discomfort [Unknown]
  - Drug dose omission [Unknown]
  - Activities of daily living impaired [Unknown]
  - Drug intolerance [Unknown]
  - Bronchitis [Unknown]
  - Abdominal pain upper [Unknown]
  - Drug hypersensitivity [Unknown]
  - Diarrhoea [Unknown]

NARRATIVE: CASE EVENT DATE: 2015
